FAERS Safety Report 8959199 (Version 2)
Quarter: 2013Q1

REPORT INFORMATION
  Report Type: Spontaneous
  Country: US (occurrence: US)
  Receive Date: 20121212
  Receipt Date: 20130114
  Transmission Date: 20140127
  Serious: No
  Sender: FDA-Public Use
  Company Number: US-009507513-1212USA002927

PATIENT
  Age: 72 Year
  Sex: Male

DRUGS (6)
  1. DULERA [Suspect]
     Indication: EMPHYSEMA
     Dosage: 2 DF, BID
     Route: 055
     Dates: start: 20120814
  2. SIMVASTATIN [Concomitant]
  3. LOSARTAN POTASSIUM [Concomitant]
  4. POTASSIUM (UNSPECIFIED) [Concomitant]
  5. ALBUTEROL SULFATE [Concomitant]
  6. XOPENEX [Concomitant]

REACTIONS (2)
  - Dyspnoea [Recovering/Resolving]
  - Product quality issue [Unknown]
